FAERS Safety Report 7746914-6 (Version None)
Quarter: 2011Q3

REPORT INFORMATION
  Report Type: 
  Country: None (occurrence: None)
  Receive Date: 20110913
  Receipt Date: 20110830
  Transmission Date: 20111222
  Serious: Yes (Other)
  Sender: FDA-Public Use
  Company Number: PHHY2011FR78093

PATIENT
  Age: 88 Year
  Sex: Female

DRUGS (5)
  1. LERCANIDIPINE [Concomitant]
     Indication: HYPERTENSION
  2. ALLOPURINOL [Concomitant]
  3. RASILEZ [Concomitant]
     Indication: HYPERTENSION
  4. VALSARTAN [Suspect]
     Indication: HYPERTENSION
     Dosage: 160 MG, UNK
     Dates: start: 20100801
  5. VALSARTAN [Suspect]
     Dosage: 80 MG, UNK
     Dates: start: 20110829

REACTIONS (12)
  - ORAL HERPES [None]
  - DYSPNOEA [None]
  - DIZZINESS [None]
  - JOINT ANKYLOSIS [None]
  - MYALGIA [None]
  - ARTHRALGIA [None]
  - SKIN DISCOLOURATION [None]
  - CARDIAC MURMUR [None]
  - PRURITUS [None]
  - HAEMORRHAGE [None]
  - INFLUENZA LIKE ILLNESS [None]
  - COUGH [None]
